FAERS Safety Report 5102099-6 (Version None)
Quarter: 2006Q3

REPORT INFORMATION
  Report Type: 
  Country: None (occurrence: None)
  Receive Date: 20060912
  Receipt Date: 20060804
  Transmission Date: 20061208
  Serious: Yes (Death)
  Sender: FDA-Public Use
  Company Number: US-ABBOTT-06P-163-0339538-00

PATIENT
  Sex: Male
  Weight: 86.26 kg

DRUGS (4)
  1. DEPAKOTE ER [Suspect]
     Indication: CONVULSION
     Route: 048
     Dates: end: 20060803
  2. LORTAB [Suspect]
     Indication: DRUG USE FOR UNKNOWN INDICATION
  3. CLONAZEPAM [Concomitant]
     Indication: INSOMNIA
     Route: 048
     Dates: end: 20060803
  4. VICODIN [Concomitant]
     Indication: NECK PAIN
     Route: 048
     Dates: start: 20020101, end: 20060803

REACTIONS (1)
  - ACCIDENTAL OVERDOSE [None]
